FAERS Safety Report 6447766-7 (Version None)
Quarter: 2009Q4

REPORT INFORMATION
  Report Type: 
  Country: None (occurrence: None)
  Receive Date: 20091120
  Receipt Date: 20091111
  Transmission Date: 20100525
  Serious: Yes (Hospitalization)
  Sender: FDA-Public Use
  Company Number: US-BIOGENIDEC-2009BI037253

PATIENT
  Age: 69 Year
  Sex: Female

DRUGS (2)
  1. AVONEX [Suspect]
     Indication: MULTIPLE SCLEROSIS
     Route: 030
     Dates: start: 20030523
  2. BIAXIN [Concomitant]

REACTIONS (4)
  - CELLULITIS [None]
  - CONFUSIONAL STATE [None]
  - DEHYDRATION [None]
  - DRUG HYPERSENSITIVITY [None]
